FAERS Safety Report 21549268 (Version 1)
Quarter: 2022Q4

REPORT INFORMATION
  Report Type: Spontaneous
  Country: US (occurrence: US)
  Receive Date: 20221103
  Receipt Date: 20221103
  Transmission Date: 20230112
  Serious: No
  Sender: FDA-Public Use
  Company Number: US-MYOVANT SCIENCES GMBH-2022MYSCI0900006

PATIENT
  Sex: Male

DRUGS (1)
  1. ORGOVYX [Suspect]
     Active Substance: RELUGOLIX
     Indication: Product used for unknown indication
     Route: 065

REACTIONS (12)
  - Neck pain [Unknown]
  - Pain in extremity [Unknown]
  - Myalgia [Unknown]
  - Asthenia [Unknown]
  - Constipation [Unknown]
  - Back pain [Unknown]
  - Arthralgia [Unknown]
  - Weight increased [Unknown]
  - Loss of libido [Unknown]
  - Hot flush [Unknown]
  - Fatigue [Unknown]
  - Neuropathy peripheral [Unknown]
